FAERS Safety Report 6068843-9 (Version None)
Quarter: 2009Q1

REPORT INFORMATION
  Report Type: 
  Country: None (occurrence: None)
  Receive Date: 20090203
  Receipt Date: 20090126
  Transmission Date: 20090719
  Serious: Yes (Disabling)
  Sender: FDA-Public Use
  Company Number: GXKR2009GB01145

PATIENT
  Age: 61 Year
  Sex: Male
  Weight: 118 kg

DRUGS (5)
  1. AMOXICILLIN AND CLAVULANATE POTASSIUM [Suspect]
     Indication: PHARYNGITIS
     Dosage: INTRAVENOUS
     Route: 042
     Dates: start: 20081230, end: 20081230
  2. ACETYLSALICYLIC ACID SRT [Concomitant]
  3. GTN (GLYCERYL TRINITRATE) [Concomitant]
  4. LANSOPRAZOLE [Concomitant]
  5. THIAMINE HCL [Concomitant]

REACTIONS (3)
  - BLOOD PRESSURE DECREASED [None]
  - DYSPNOEA [None]
  - HEART RATE INCREASED [None]
